FAERS Safety Report 17647453 (Version 1)
Quarter: 2020Q2

REPORT INFORMATION
  Report Type: Spontaneous
  Country: FR (occurrence: FR)
  Receive Date: 20200408
  Receipt Date: 20200408
  Transmission Date: 20200713
  Serious: Yes (Hospitalization)
  Sender: FDA-Public Use
  Company Number: FR-MYLANLABS-2019M1120310

PATIENT
  Age: 66 Year
  Sex: Female

DRUGS (4)
  1. OFLOXACIN. [Suspect]
     Active Substance: OFLOXACIN
     Indication: MEDICAL DEVICE SITE JOINT INFECTION
     Dosage: 600 MILLIGRAM, QD (600 MG PER DAY)
     Route: 042
  2. OFLOXACIN. [Suspect]
     Active Substance: OFLOXACIN
     Indication: PROTEUS INFECTION
  3. LETROZOLE. [Suspect]
     Active Substance: LETROZOLE
     Indication: BREAST CANCER
     Dosage: 600 MILLIGRAM, QD
  4. LETROZOLE. [Suspect]
     Active Substance: LETROZOLE
     Indication: CANCER HORMONAL THERAPY
     Dosage: UNK UNK, QD

REACTIONS (3)
  - Pathogen resistance [Recovered/Resolved]
  - Periprosthetic fracture [Recovering/Resolving]
  - Osteoporosis [Recovering/Resolving]
